FAERS Safety Report 23974765 (Version 2)
Quarter: 2024Q3

REPORT INFORMATION
  Report Type: Spontaneous
  Country: JP (occurrence: JP)
  Receive Date: 20240614
  Receipt Date: 20240814
  Transmission Date: 20241017
  Serious: Yes (Death, Other)
  Sender: GLAXOSMITHKLINE
  Company Number: JP-GSKJP-JP2024JPN072279AA

PATIENT

DRUGS (1)
  1. VALTREX [Suspect]
     Active Substance: VALACYCLOVIR HYDROCHLORIDE
     Indication: Herpes zoster
     Dosage: UNK

REACTIONS (9)
  - Death [Fatal]
  - Inappropriate antidiuretic hormone secretion [Unknown]
  - Depressed level of consciousness [Unknown]
  - Altered state of consciousness [Unknown]
  - Hyponatraemia [Unknown]
  - Blood hyposmosis [Unknown]
  - Hypophagia [Unknown]
  - Pain [Unknown]
  - General physical health deterioration [Unknown]
